FAERS Safety Report 22339348 (Version 1)
Quarter: 2023Q2

REPORT INFORMATION
  Report Type: Spontaneous
  Country: CN (occurrence: CN)
  Receive Date: 20230518
  Receipt Date: 20230518
  Transmission Date: 20230722
  Serious: Yes (Hospitalization)
  Sender: FDA-Public Use
  Company Number: CN-PFIZER INC-PV202300085896

PATIENT
  Age: 72 Year
  Sex: Male
  Weight: 55.1 kg

DRUGS (2)
  1. XALKORI [Suspect]
     Active Substance: CRIZOTINIB
     Indication: Lung carcinoma cell type unspecified recurrent
     Dosage: 250 MG, 2X/DAY
     Route: 048
     Dates: start: 20230327, end: 20230428
  2. XALKORI [Suspect]
     Active Substance: CRIZOTINIB
     Indication: Lung adenocarcinoma stage IV

REACTIONS (3)
  - Hepatic enzyme increased [Unknown]
  - Blood bilirubin increased [Unknown]
  - Drug-induced liver injury [Unknown]

NARRATIVE: CASE EVENT DATE: 20230427
